FAERS Safety Report 9723465 (Version 1)
Quarter: 2013Q4

REPORT INFORMATION
  Report Type: Spontaneous
  Country: US (occurrence: US)
  Receive Date: 20131202
  Receipt Date: 20131202
  Transmission Date: 20140711
  Serious: Yes (Other)
  Sender: FDA-Public Use
  Company Number: US-BAYER-2013-143678

PATIENT
  Sex: Male

DRUGS (1)
  1. AVELOX I.V. [Suspect]
     Route: 042

REACTIONS (2)
  - Osteomyelitis [None]
  - Pain [None]
